FAERS Safety Report 21047244 (Version 2)
Quarter: 2023Q1

REPORT INFORMATION
  Report Type: Spontaneous
  Country: CN (occurrence: CN)
  Receive Date: 20220706
  Receipt Date: 20230203
  Transmission Date: 20230418
  Serious: Yes (Other)
  Sender: FDA-Public Use
  Company Number: CN-BEIGENE-BGN-2022-007169

PATIENT

DRUGS (1)
  1. BRUKINSA [Suspect]
     Active Substance: ZANUBRUTINIB
     Indication: Waldenstrom^s macroglobulinaemia
     Dosage: UNK
     Dates: start: 2021

REACTIONS (5)
  - Renal amyloidosis [Unknown]
  - Deep vein thrombosis [Unknown]
  - Blood immunoglobulin M increased [Unknown]
  - COVID-19 [Unknown]
  - Product dose omission issue [Unknown]
